FAERS Safety Report 11288580 (Version 1)
Quarter: 2015Q3

REPORT INFORMATION
  Report Type: Spontaneous
  Country: US (occurrence: US)
  Receive Date: 20150721
  Receipt Date: 20150721
  Transmission Date: 20151125
  Serious: No
  Sender: FDA-Public Use
  Company Number: US-UNITED THERAPEUTICS-UNT-2015-003171

PATIENT
  Age: 38 Year
  Sex: Female
  Weight: 66.44 kg

DRUGS (3)
  1. WARFARIN                           /00014802/ [Concomitant]
     Active Substance: WARFARIN
     Indication: PRODUCT USED FOR UNKNOWN INDICATION
  2. REMODULIN [Suspect]
     Active Substance: TREPROSTINIL
     Indication: PULMONARY ARTERIAL HYPERTENSION
     Dosage: 0.036 ?G/KG/MIN, CONTINUING
     Route: 058
     Dates: start: 20130104
  3. ADCIRCA [Concomitant]
     Active Substance: TADALAFIL
     Indication: PRODUCT USED FOR UNKNOWN INDICATION

REACTIONS (7)
  - Device occlusion [Unknown]
  - Dyspnoea exertional [Unknown]
  - Infusion site induration [Not Recovered/Not Resolved]
  - Oxygen saturation decreased [Unknown]
  - Oedema peripheral [Unknown]
  - Drug dose omission [Unknown]
  - Infusion site haemorrhage [Unknown]

NARRATIVE: CASE EVENT DATE: 201503
